FAERS Safety Report 7790991-3 (Version None)
Quarter: 2011Q4

REPORT INFORMATION
  Report Type: 
  Country: None (occurrence: None)
  Receive Date: 20111002
  Receipt Date: 20110923
  Transmission Date: 20120403
  Serious: Yes (Hospitalization, Other)
  Sender: FDA-Public Use
  Company Number: PHEH2010US03426

PATIENT
  Sex: Female

DRUGS (33)
  1. IBUPROFEN [Concomitant]
  2. TAXOTERE [Concomitant]
     Dosage: 45 MG,
     Route: 042
  3. ZOFRAN [Concomitant]
  4. DEXAMETHASONE [Concomitant]
  5. DECADRON [Concomitant]
     Dosage: 10 MG,
     Route: 042
  6. MEGACE [Concomitant]
  7. PAXIL [Concomitant]
  8. CLONAZEPAM [Concomitant]
  9. LISINOPRIL [Concomitant]
     Dosage: 10 MG, QD
  10. OXYCONTIN [Concomitant]
  11. ZANTAC [Concomitant]
  12. PERIDEX [Concomitant]
  13. DURAGESIC-100 [Concomitant]
  14. WELLBUTRIN [Concomitant]
     Dosage: 150 MG, BID
  15. HERCEPTIN [Concomitant]
  16. TAXOL [Concomitant]
  17. BUSPIRONE [Concomitant]
  18. AREDIA [Suspect]
  19. BENADRYL [Concomitant]
  20. HYDROCODONE [Concomitant]
  21. PRILOSEC [Concomitant]
  22. ELAVIL [Concomitant]
  23. ZOMETA [Suspect]
  24. TAMOXIFEN CITRATE [Concomitant]
  25. NEUPOGEN [Concomitant]
  26. MORPHINE [Concomitant]
  27. FENTANYL [Concomitant]
  28. LOVASTATIN [Concomitant]
     Dosage: 40 MG, QD
  29. POTASSIUM CHLORIDE [Concomitant]
  30. MEGESTROL ACETATE [Concomitant]
  31. AMBIEN [Concomitant]
  32. KEFLEX [Concomitant]
  33. PROMETHAZINE [Concomitant]

REACTIONS (58)
  - BONE FRAGMENTATION [None]
  - EXPOSED BONE IN JAW [None]
  - COMPRESSION FRACTURE [None]
  - NEUTROPENIA [None]
  - DIARRHOEA [None]
  - FATIGUE [None]
  - DYSURIA [None]
  - NEUROPATHY PERIPHERAL [None]
  - OSTEONECROSIS OF JAW [None]
  - ANXIETY [None]
  - LEFT VENTRICULAR DYSFUNCTION [None]
  - GASTRITIS [None]
  - ARTHRALGIA [None]
  - MUSCLE STRAIN [None]
  - FALL [None]
  - CHILLS [None]
  - PAIN IN JAW [None]
  - PATHOLOGICAL FRACTURE [None]
  - INJURY [None]
  - METASTASES TO BONE [None]
  - OSTEOARTHRITIS [None]
  - SUICIDE ATTEMPT [None]
  - CARDIAC FAILURE CHRONIC [None]
  - CARDIOMYOPATHY [None]
  - RENAL FAILURE [None]
  - HYPERLIPIDAEMIA [None]
  - RADICULOPATHY [None]
  - PALMAR-PLANTAR ERYTHRODYSAESTHESIA SYNDROME [None]
  - HYPERGLYCAEMIA [None]
  - DYSPEPSIA [None]
  - ABDOMINAL PAIN UPPER [None]
  - WEIGHT INCREASED [None]
  - HYPOKALAEMIA [None]
  - GASTROINTESTINAL HAEMORRHAGE [None]
  - HAEMATOCHEZIA [None]
  - DISABILITY [None]
  - PAIN [None]
  - BONE LESION [None]
  - SINUS TACHYCARDIA [None]
  - COLITIS ULCERATIVE [None]
  - MUSCULOSKELETAL CHEST PAIN [None]
  - ANHEDONIA [None]
  - OSTEOMYELITIS [None]
  - BREAST CANCER METASTATIC [None]
  - ANAEMIA [None]
  - HYPERTENSION [None]
  - CONSTIPATION [None]
  - WOUND [None]
  - DEPRESSION [None]
  - MUSCULOSKELETAL STIFFNESS [None]
  - BACK PAIN [None]
  - INTESTINAL ULCER [None]
  - BENIGN GASTRIC NEOPLASM [None]
  - HYPOTENSION [None]
  - BLOOD CHOLESTEROL INCREASED [None]
  - PYREXIA [None]
  - KYPHOSIS [None]
  - HIP FRACTURE [None]
